FAERS Safety Report 6719681-2 (Version None)
Quarter: 2010Q2

REPORT INFORMATION
  Report Type: 
  Country: None (occurrence: None)
  Receive Date: 20100510
  Receipt Date: 20100510
  Transmission Date: 20101027
  Serious: Yes (Hospitalization)
  Sender: FDA-Public Use
  Company Number: None

PATIENT
  Age: 75 Year
  Sex: Male
  Weight: 87.1 kg

DRUGS (12)
  1. TEMSIROLIMUS [Suspect]
     Indication: PROSTATE CANCER
     Dosage: 10MG/KG ONLY DOSE RECD
     Dates: start: 20100421
  2. METOPROLOL TARTRATE [Concomitant]
  3. LASIX [Concomitant]
  4. TRELSTAR [Concomitant]
  5. POTASSIUM CHLORIDE [Concomitant]
  6. OXYCOONE [Concomitant]
  7. ACCUPRIL [Concomitant]
  8. PRILOSEC [Concomitant]
  9. OXYCONTIN [Concomitant]
  10. DACTROBAN [Concomitant]
  11. AYR SALINE [Concomitant]
  12. SODIUM CHLORIDE [Concomitant]

REACTIONS (4)
  - AMNESIA [None]
  - ASTHENIA [None]
  - GAIT DISTURBANCE [None]
  - HAEMOGLOBIN DECREASED [None]
